FAERS Safety Report 5214379-4 (Version None)
Quarter: 2007Q1

REPORT INFORMATION
  Report Type: 
  Country: None (occurrence: None)
  Receive Date: 20070122
  Receipt Date: 20070112
  Transmission Date: 20070707
  Serious: Yes (Hospitalization)
  Sender: FDA-Public Use
  Company Number: FR-GLAXOSMITHKLINE-B0454500A

PATIENT
  Age: 66 Year
  Sex: Female
  Weight: 55 kg

DRUGS (6)
  1. AUGMENTIN '125' [Suspect]
     Dosage: 1G SINGLE DOSE
     Route: 042
     Dates: start: 20060730, end: 20060730
  2. DOLIPRANE [Suspect]
     Dosage: 2UNIT PER DAY
     Route: 048
     Dates: start: 20060727
  3. ZECLAR [Suspect]
     Dosage: 2UNIT PER DAY
     Route: 048
     Dates: start: 20060727, end: 20060730
  4. AZOPT [Suspect]
     Indication: GLAUCOMA
     Route: 047
     Dates: start: 20060730, end: 20060730
  5. SILOMAT [Suspect]
     Indication: COUGH
     Dosage: 1TAB SINGLE DOSE
     Route: 048
     Dates: start: 20060728, end: 20060729
  6. CORTANCYL [Suspect]
     Indication: ARTHROPATHY
     Route: 048

REACTIONS (3)
  - AGRANULOCYTOSIS [None]
  - GENERAL PHYSICAL HEALTH DETERIORATION [None]
  - PYREXIA [None]
